FAERS Safety Report 8415947-9 (Version None)
Quarter: 2012Q2

REPORT INFORMATION
  Report Type: 
  Country: None (occurrence: None)
  Receive Date: 20120530
  Receipt Date: 20120516
  Transmission Date: 20120825
  Serious: Yes (Life-Threatening)
  Sender: FDA-Public Use
  Company Number: GER/ITL/12/0022788

PATIENT
  Age: 45 Year
  Sex: Male

DRUGS (6)
  1. FUROSEMIDE [Concomitant]
  2. ATORVASTATIN [Concomitant]
  3. METOPROLOL TARTRATE [Concomitant]
  4. ASPIRIN [Suspect]
     Indication: ANTIPLATELET THERAPY
  5. ACETYLSALICYLIC ACID SRT [Concomitant]
  6. CLOPIDEGREL [Suspect]
     Indication: ISCHAEMIC HEART DISEASE PROPHYLAXIS
     Dosage: 75 MG, ORAL
     Route: 048
     Dates: start: 20111207, end: 20120113

REACTIONS (2)
  - ACUTE MYOCARDIAL INFARCTION [None]
  - THROMBOSIS IN DEVICE [None]
